FAERS Safety Report 6214234-7 (Version None)
Quarter: 2009Q2

REPORT INFORMATION
  Report Type: 
  Country: None (occurrence: None)
  Receive Date: 20090604
  Receipt Date: 20090526
  Transmission Date: 20091009
  Serious: Yes (Hospitalization)
  Sender: FDA-Public Use
  Company Number: PHHY2009JP20497

PATIENT

DRUGS (2)
  1. GLEEVEC [Suspect]
     Indication: GASTROINTESTINAL STROMAL TUMOUR
     Dosage: 300 MG, UNK
     Route: 048
     Dates: start: 20080401
  2. GLEEVEC [Suspect]
     Dosage: 200 MG DAILY
     Route: 048

REACTIONS (2)
  - NEPHRITIS [None]
  - RENAL IMPAIRMENT [None]
